FAERS Safety Report 25856504 (Version 5)
Quarter: 2025Q4

REPORT INFORMATION
  Report Type: Spontaneous
  Country: EU (occurrence: EU)
  Receive Date: 20250929
  Receipt Date: 20251111
  Transmission Date: 20260117
  Serious: Yes (Life-Threatening, Hospitalization, Congenital Anomaly)
  Sender: AMGEN
  Company Number: EU-002147023-NVSC2025DE147340

PATIENT
  Sex: Female
  Weight: 3.8 kg

DRUGS (1)
  1. AIMOVIG [Suspect]
     Active Substance: ERENUMAB-AOOE
     Indication: Foetal exposure during pregnancy
     Dosage: MATERNAL EXPOSURE BEFORE PREGNANCY: UNK
     Route: 064

REACTIONS (4)
  - Arrhythmia [Recovering/Resolving]
  - Dilated cardiomyopathy [Recovering/Resolving]
  - Heart disease congenital [Recovering/Resolving]
  - Maternal exposure before pregnancy [Unknown]
